FAERS Safety Report 9131920 (Version 1)
Quarter: 2013Q1

REPORT INFORMATION
  Report Type: Spontaneous
  Country: CA (occurrence: CA)
  Receive Date: 20130301
  Receipt Date: 20130301
  Transmission Date: 20140127
  Serious: Yes (Hospitalization)
  Sender: FDA-Public Use
  Company Number: CA-BAXTER-2012BAX027156

PATIENT
  Age: 65 Year
  Sex: Female

DRUGS (2)
  1. DIANEAL PD4 SOLUTION WITH 1.5% DEXTROSE AND 2.5 MEQ/L CALCIUM [Suspect]
     Indication: PERITONEAL DIALYSIS
     Route: 033
  2. LITHIUM [Concomitant]
     Indication: BIPOLAR DISORDER
     Route: 065

REACTIONS (4)
  - Bipolar disorder [Unknown]
  - Asthenia [Recovering/Resolving]
  - Lethargy [Recovering/Resolving]
  - Fall [Unknown]
